FAERS Safety Report 4607529-1 (Version None)
Quarter: 2005Q1

REPORT INFORMATION
  Report Type: 
  Country: None (occurrence: None)
  Receive Date: 20050309
  Receipt Date: 20050217
  Transmission Date: 20050727
  Serious: Yes (Hospitalization, Other)
  Sender: FDA-Public Use
  Company Number: JP_050105638

PATIENT
  Age: 64 Year
  Sex: Male

DRUGS (3)
  1. GEMZAR [Suspect]
     Indication: PANCREATIC CARCINOMA
     Dosage: 1600 MG OTHER
     Route: 050
     Dates: start: 20010703, end: 20031029
  2. RADIOTHERAPY [Concomitant]
  3. KYTRIL [Concomitant]

REACTIONS (14)
  - ABDOMINAL PAIN [None]
  - ANOREXIA [None]
  - COLONIC STENOSIS [None]
  - DEHYDRATION [None]
  - DIARRHOEA [None]
  - EROSIVE DUODENITIS [None]
  - GASTROENTERITIS RADIATION [None]
  - GASTROINTESTINAL OEDEMA [None]
  - GENERALISED OEDEMA [None]
  - HYPOALBUMINAEMIA [None]
  - HYPOKALAEMIA [None]
  - INTESTINAL MUCOSAL HYPERTROPHY [None]
  - MUSCLE ATROPHY [None]
  - ORAL INTAKE REDUCED [None]
